FAERS Safety Report 20176351 (Version 1)
Quarter: 2021Q4

REPORT INFORMATION
  Report Type: Spontaneous
  Country: US (occurrence: None)
  Receive Date: 20211209
  Receipt Date: 20211209
  Transmission Date: 20220303
  Serious: No
  Sender: FDA-Public Use
  Company Number: None

PATIENT
  Age: 81 Year
  Sex: Female

DRUGS (1)
  1. IVERMECTIN [Suspect]
     Active Substance: IVERMECTIN

REACTIONS (24)
  - Hypotension [None]
  - Decreased appetite [None]
  - Depressed level of consciousness [None]
  - Unevaluable event [None]
  - Self-medication [None]
  - Pain [None]
  - Lethargy [None]
  - Toxicity to various agents [None]
  - Rash [None]
  - Urticaria [None]
  - Pruritus [None]
  - Oedema [None]
  - Headache [None]
  - Dizziness [None]
  - Somnolence [None]
  - Asthenia [None]
  - Nausea [None]
  - Vomiting [None]
  - Abdominal pain [None]
  - Diarrhoea [None]
  - Tachycardia [None]
  - Seizure [None]
  - Acidosis [None]
  - Unintentional use for unapproved indication [None]
